FAERS Safety Report 5197577-8 (Version None)
Quarter: 2007Q1

REPORT INFORMATION
  Report Type: 
  Country: None (occurrence: None)
  Receive Date: 20070103
  Receipt Date: 20061221
  Transmission Date: 20070707
  Serious: Yes (Other)
  Sender: FDA-Public Use
  Company Number: DE-GILEAD-2006-0010883

PATIENT
  Sex: Female

DRUGS (2)
  1. TRUVADA [Suspect]
  2. KALETRA [Concomitant]

REACTIONS (3)
  - DYSPNOEA [None]
  - INSPIRATORY CAPACITY DECREASED [None]
  - PULMONARY FIBROSIS [None]
